FAERS Safety Report 14318017 (Version 1)
Quarter: 2017Q4

REPORT INFORMATION
  Report Type: Spontaneous
  Country: US (occurrence: US)
  Receive Date: 20171220
  Receipt Date: 20171220
  Transmission Date: 20180321
  Serious: Yes (Other)
  Sender: FDA-Public Use
  Company Number: None

PATIENT
  Age: 39 Year
  Sex: Female
  Weight: 73.94 kg

DRUGS (1)
  1. BUPROPRION [Suspect]
     Active Substance: BUPROPION
     Dates: start: 20171214, end: 20171214

REACTIONS (1)
  - Urticaria [None]

NARRATIVE: CASE EVENT DATE: 20171214
